FAERS Safety Report 6783751-3 (Version None)
Quarter: 2010Q2

REPORT INFORMATION
  Report Type: 
  Country: None (occurrence: None)
  Receive Date: 20100622
  Receipt Date: 20100610
  Transmission Date: 20101027
  Serious: Yes (Other)
  Sender: FDA-Public Use
  Company Number: US-BAYER-201017274NA

PATIENT
  Age: 54 Year
  Sex: Male
  Weight: 61 kg

DRUGS (18)
  1. MAGNEVIST [Suspect]
     Indication: NUCLEAR MAGNETIC RESONANCE IMAGING
     Dates: start: 20060714, end: 20060714
  2. OMNISCAN [Suspect]
     Indication: NUCLEAR MAGNETIC RESONANCE IMAGING
     Dates: start: 20060617, end: 20060617
  3. PROCARDIA XL [Concomitant]
     Dosage: 90 BID
  4. EPO [Concomitant]
     Dosage: PER PROTOCOL
  5. HOLDIRON [Concomitant]
     Dosage: PER PROTOCOL
  6. HEPARIN [Concomitant]
     Dosage: 1000/500
  7. ASPIRIN [Concomitant]
     Dosage: TOTAL DAILY DOSE: 81 MG
     Route: 048
  8. KALETRA [Concomitant]
     Dosage: 2 TABLETS EVERY 12 HOURS
  9. VIREASE [Concomitant]
  10. STAVUDINE [Concomitant]
     Dosage: TOTAL DAILY DOSE: 20 MG
     Route: 048
  11. TENOFOVIR [Concomitant]
     Dosage: 300 MG Q 7 DAYS
  12. VITAMIN B COMPLEX WITH VITAMIN C [Concomitant]
     Dosage: TOTAL DAILY DOSE: 1 DF
     Route: 048
  13. PREDNISONE [Concomitant]
     Dosage: TOTAL DAILY DOSE: 20 MG
     Dates: start: 20060803
  14. ALLOPURINOL [Concomitant]
     Dosage: TOTAL DAILY DOSE: 100 MG
     Route: 048
  15. NEPHROVITE [Concomitant]
     Dosage: WITH MEALS
  16. PHOSLO [Concomitant]
  17. CAL RITE [Concomitant]
  18. COLCHICINE [Concomitant]

REACTIONS (5)
  - ABASIA [None]
  - ARTHRALGIA [None]
  - JOINT SWELLING [None]
  - NEPHROGENIC SYSTEMIC FIBROSIS [None]
  - PAIN IN EXTREMITY [None]
